FAERS Safety Report 7591218-8 (Version None)
Quarter: 2011Q3

REPORT INFORMATION
  Report Type: 
  Country: None (occurrence: None)
  Receive Date: 20110706
  Receipt Date: 20110622
  Transmission Date: 20111222
  Serious: Yes (Other)
  Sender: FDA-Public Use
  Company Number: FR-BIOGENIDEC-2011BI022962

PATIENT
  Age: 38 Year
  Sex: Female

DRUGS (6)
  1. LEXOMIL [Concomitant]
  2. ZOLOFT [Concomitant]
  3. DIHYDROERGOTAMINE MESYLATE [Concomitant]
  4. ALFUZOSIN HCL [Concomitant]
     Route: 048
  5. TYSABRI [Suspect]
     Indication: MULTIPLE SCLEROSIS
     Route: 042
     Dates: start: 20090201
  6. UVEDOSE [Concomitant]
     Route: 048

REACTIONS (1)
  - FUNGAL INFECTION [None]
